FAERS Safety Report 7878753-X (Version None)
Quarter: 2011Q4

REPORT INFORMATION
  Report Type: 
  Country: None (occurrence: None)
  Receive Date: 20111101
  Receipt Date: 20111028
  Transmission Date: 20120403
  Serious: Yes (Death, Life-Threatening, Hospitalization)
  Sender: FDA-Public Use
  Company Number: JP-ASTRAZENECA-2011SE46246

PATIENT
  Age: 29908 Day
  Sex: Male

DRUGS (30)
  1. PLAVIX [Suspect]
     Indication: ACUTE CORONARY SYNDROME
     Route: 048
     Dates: start: 20110728, end: 20110801
  2. SALINE [Concomitant]
     Route: 051
     Dates: start: 20110801, end: 20110803
  3. PLACEBO [Suspect]
     Dosage: MAINTENANCE DOSE, DAILY
     Route: 048
     Dates: start: 20110729, end: 20110801
  4. ASPIRIN [Suspect]
     Indication: ACUTE CORONARY SYNDROME
     Route: 048
     Dates: start: 20110728, end: 20110728
  5. FUROSEMIDE [Concomitant]
     Indication: CARDIAC FAILURE
     Route: 051
     Dates: start: 20110729, end: 20110730
  6. FUROSEMIDE [Concomitant]
     Route: 051
     Dates: start: 20110804, end: 20110804
  7. IOPAMIDOL [Concomitant]
     Indication: ANGIOGRAM
     Route: 051
     Dates: start: 20110728, end: 20110728
  8. CARVEDILOL [Concomitant]
     Indication: MYOCARDIAL INFARCTION
     Route: 048
     Dates: start: 20110801, end: 20110801
  9. PLACEBO [Suspect]
     Indication: ACUTE CORONARY SYNDROME
     Dosage: LOADING DOSE, ONE SINGLE ADMINISTRATION
     Route: 048
     Dates: start: 20110728, end: 20110728
  10. BROTIZOLAM [Concomitant]
     Indication: SLEEP DISORDER
     Route: 048
     Dates: start: 20110730, end: 20110731
  11. INTRACORONARY MILLISTROL [Concomitant]
     Indication: ARTERIOSPASM CORONARY
     Route: 022
     Dates: start: 20110728, end: 20110728
  12. ROCEPHIN [Concomitant]
     Indication: INFECTION
     Route: 051
     Dates: start: 20110804, end: 20110804
  13. SUNRYTHM [Concomitant]
     Indication: ARRHYTHMIA
     Route: 051
     Dates: start: 20110729, end: 20110729
  14. HEPARIN SODIUM [Suspect]
     Indication: THROMBOSIS PROPHYLAXIS
     Route: 051
     Dates: start: 20110728, end: 20110728
  15. AMIODARONE HCL [Concomitant]
     Route: 048
     Dates: start: 20110731, end: 20110801
  16. CRESTOR [Concomitant]
     Indication: HYPERLIPIDAEMIA
     Route: 048
     Dates: start: 20110729, end: 20110801
  17. AMPICILLIN SODIUM/SULBACTAM SODIUM [Concomitant]
     Indication: INFECTION
     Route: 051
     Dates: start: 20110801, end: 20110801
  18. SIGMART [Concomitant]
     Indication: MYOCARDIAL INFARCTION
     Route: 051
     Dates: start: 20110728, end: 20110728
  19. SALINE [Concomitant]
     Indication: PROPHYLAXIS AGAINST DEHYDRATION
     Route: 051
     Dates: start: 20110728, end: 20110730
  20. VERAPAMIL HCL [Concomitant]
     Indication: ARRHYTHMIA
     Route: 051
     Dates: start: 20110804, end: 20110804
  21. ALDACTONE [Concomitant]
     Indication: MYOCARDIAL INFARCTION
     Route: 048
     Dates: start: 20110729, end: 20110801
  22. HEPARIN SODIUM [Suspect]
     Route: 051
     Dates: start: 20110728, end: 20110729
  23. AMIODARONE HCL [Concomitant]
     Indication: ARRHYTHMIA
     Route: 051
     Dates: start: 20110729, end: 20110731
  24. XYLOCAINE [Concomitant]
     Indication: LOCAL ANAESTHESIA
     Route: 051
     Dates: start: 20110728, end: 20110728
  25. MYOCOR [Concomitant]
     Indication: CARDIAC FAILURE
     Route: 051
     Dates: start: 20110728, end: 20110728
  26. ENALAPRIL MALEATE [Concomitant]
     Indication: MYOCARDIAL INFARCTION
     Route: 048
     Dates: start: 20110729, end: 20110801
  27. METOPROLOL TARTRATE [Concomitant]
     Indication: ACUTE CORONARY SYNDROME
     Route: 048
     Dates: start: 20110729, end: 20110731
  28. RABEPRAZOLE SODIUM [Concomitant]
     Indication: GASTRITIS PROPHYLAXIS
     Route: 048
     Dates: start: 20110729, end: 20110801
  29. LIDOCAINE [Concomitant]
     Indication: ARRHYTHMIA
     Route: 051
     Dates: start: 20110728, end: 20110728
  30. SOLDEM [Concomitant]
     Indication: PROPHYLAXIS AGAINST DEHYDRATION
     Route: 051
     Dates: start: 20110804, end: 20110804

REACTIONS (5)
  - CEREBRAL INFARCTION [None]
  - PYREXIA [None]
  - BRAIN OEDEMA [None]
  - PHLEBITIS [None]
  - CAROTID ARTERY OCCLUSION [None]
